FAERS Safety Report 4320177-6 (Version None)
Quarter: 2004Q1

REPORT INFORMATION
  Report Type: 
  Country: None (occurrence: None)
  Receive Date: 20040317
  Receipt Date: 20040304
  Transmission Date: 20041129
  Serious: Yes (Congenital Anomaly, Other)
  Sender: FDA-Public Use
  Company Number: 2004015548

PATIENT
  Sex: Male

DRUGS (1)
  1. VFEND [Suspect]
     Indication: BRONCHOPULMONARY ASPERGILLOSIS ALLERGIC
     Dosage: 400 MG, BID, ORAL
     Route: 048

REACTIONS (1)
  - BLINDNESS [None]
